FAERS Safety Report 15431883 (Version 1)
Quarter: 2018Q3

REPORT INFORMATION
  Report Type: Other
  Country: DE (occurrence: DE)
  Receive Date: 20180926
  Receipt Date: 20180926
  Transmission Date: 20181010
  Serious: Yes (Life-Threatening)
  Sender: FDA-Public Use
  Company Number: DE-B. BRAUN MEDICAL INC.-2055374

PATIENT
  Age: 60 Year
  Sex: Male

DRUGS (1)
  1. CEFUROXIME FOR INJECTION USP AND DEXTROSE INJECTION USP [Suspect]
     Active Substance: CEFUROXIME SODIUM
     Route: 042

REACTIONS (8)
  - Skin burning sensation [None]
  - Dyspnoea [None]
  - Anaphylactic reaction [None]
  - Dysgeusia [None]
  - Flushing [None]
  - Hypotension [None]
  - Kounis syndrome [None]
  - Chest pain [None]
